FAERS Safety Report 12537660 (Version 1)
Quarter: 2016Q3

REPORT INFORMATION
  Report Type: Spontaneous
  Country: JP (occurrence: JP)
  Receive Date: 20160707
  Receipt Date: 20160707
  Transmission Date: 20161109
  Serious: Yes (Other)
  Sender: FDA-Public Use
  Company Number: JP-SHENZHEN TECHDOW PHARMACEUTICAL CO. LTD-JP-2016TEC0000021

PATIENT
  Age: 50 Year
  Sex: Male
  Weight: 65.2 kg

DRUGS (3)
  1. HEPARIN SODIUM INJECTION USP, PRESERVATIVE FREE [Suspect]
     Active Substance: HEPARIN SODIUM
     Indication: PULMONARY EMBOLISM
     Dosage: DF, CONTINUOUS INFUSION [UNFRACTIONATED]
     Route: 042
  2. HEPARIN SODIUM INJECTION USP, PRESERVATIVE FREE [Suspect]
     Active Substance: HEPARIN SODIUM
     Indication: DEEP VEIN THROMBOSIS
  3. HEPARIN SODIUM INJECTION USP, PRESERVATIVE FREE [Suspect]
     Active Substance: HEPARIN SODIUM
     Indication: ANTICOAGULANT THERAPY

REACTIONS (5)
  - Inferior vena caval occlusion [Recovered/Resolved]
  - Antithrombin III deficiency [Recovered/Resolved]
  - Thrombosis [Recovered/Resolved]
  - Heparin-induced thrombocytopenia [Recovered/Resolved]
  - Oedema peripheral [Recovered/Resolved]
